FAERS Safety Report 7689194-2 (Version None)
Quarter: 2011Q3

REPORT INFORMATION
  Report Type: 
  Country: None (occurrence: None)
  Receive Date: 20110811
  Receipt Date: 20110808
  Transmission Date: 20111222
  Serious: Yes (Hospitalization, Other)
  Sender: FDA-Public Use
  Company Number: ACO_23119_2011

PATIENT
  Age: 43 Year
  Sex: Female

DRUGS (10)
  1. AMPYRA [Suspect]
     Indication: PRODUCT USED FOR UNKNOWN INDICATION
     Dosage: 10 MG , ORAL
     Route: 048
     Dates: start: 20110301, end: 20110101
  2. MULTIVITAMIN /00831701/(VITAMINS NOS) [Concomitant]
  3. TRAMADOL HCL [Suspect]
     Indication: PRODUCT USED FOR UNKNOWN INDICATION
     Dates: start: 20110101, end: 20110101
  4. VESICARE [Concomitant]
  5. ADVIL /00109201/(IBUPROFEN) [Concomitant]
  6. FLUOXETINE HYDROCHLORIDE [Concomitant]
  7. CALCIUM CARBONATE [Concomitant]
  8. ERGOCALCIFEROL [Concomitant]
  9. TYSABRI [Concomitant]
  10. VITAMIN C /00008001/(ASCORBIC ACID) [Concomitant]

REACTIONS (14)
  - LEUKOCYTOSIS [None]
  - ISCHAEMIA [None]
  - GAIT DISTURBANCE [None]
  - WEIGHT BEARING DIFFICULTY [None]
  - HEMIPARESIS [None]
  - STATUS EPILEPTICUS [None]
  - HYPOTENSION [None]
  - ELECTROCARDIOGRAM T WAVE INVERSION [None]
  - DEPRESSION [None]
  - HEADACHE [None]
  - INCOHERENT [None]
  - VIITH NERVE PARALYSIS [None]
  - TACHYCARDIA [None]
  - CONDITION AGGRAVATED [None]
